FAERS Safety Report 7638981-5 (Version None)
Quarter: 2011Q3

REPORT INFORMATION
  Report Type: 
  Country: None (occurrence: None)
  Receive Date: 20110727
  Receipt Date: 20110722
  Transmission Date: 20111222
  Serious: No
  Sender: FDA-Public Use
  Company Number: US-PFIZER INC-2011167292

PATIENT
  Sex: Female

DRUGS (1)
  1. PREMARIN [Suspect]
     Indication: VULVOVAGINAL BURNING SENSATION
     Dosage: UNK
     Route: 067

REACTIONS (2)
  - PRURITUS GENERALISED [None]
  - DRUG EFFECT DECREASED [None]
